FAERS Safety Report 20645382 (Version 1)
Quarter: 2022Q1

REPORT INFORMATION
  Report Type: Spontaneous
  Country: US (occurrence: None)
  Receive Date: 20220328
  Receipt Date: 20220328
  Transmission Date: 20220424
  Serious: Yes (Disabling)
  Sender: FDA-Public Use
  Company Number: None

PATIENT
  Age: 27 Year
  Sex: Female
  Weight: 67.5 kg

DRUGS (4)
  1. BUPRENORPHINE [Suspect]
     Active Substance: BUPRENORPHINE
     Indication: Drug dependence
     Dosage: FREQUENCY : DAILY;?
     Route: 060
     Dates: start: 20150602
  2. BUPRENORPHINE [Concomitant]
     Active Substance: BUPRENORPHINE
  3. ALPRAZOLAM [Concomitant]
     Active Substance: ALPRAZOLAM
  4. sertrailine [Concomitant]

REACTIONS (5)
  - Dental caries [None]
  - Tooth fracture [None]
  - Infection [None]
  - Pain [None]
  - Gingival disorder [None]

NARRATIVE: CASE EVENT DATE: 20210910
